FAERS Safety Report 19241001 (Version 2)
Quarter: 2023Q2

REPORT INFORMATION
  Report Type: Report from Study
  Country: GB (occurrence: GB)
  Receive Date: 20210511
  Receipt Date: 20230629
  Transmission Date: 20230722
  Serious: Yes (Other)
  Sender: FDA-Public Use
  Company Number: GB-EMA-DD-20180312-NSINGHEVHP-183101

PATIENT
  Age: 38 Month

DRUGS (5)
  1. MELPHALAN [Suspect]
     Active Substance: MELPHALAN
     Indication: Retinoblastoma
     Dosage: 5 MILLIGRAM, CYCLIC (3)
     Route: 013
  2. TOPOTECAN [Suspect]
     Active Substance: TOPOTECAN HYDROCHLORIDE
     Indication: Retinoblastoma
     Dosage: 1 MILLIGRAM, 1  CYCLIC (1, 2, 3)
     Route: 013
  3. VINCRISTINE [Suspect]
     Active Substance: VINCRISTINE
     Indication: Retinoblastoma
     Dosage: UNK, CYCLIC (6 CYCLES)
     Route: 065
  4. CARBOPLATIN [Suspect]
     Active Substance: CARBOPLATIN
     Indication: Retinoblastoma
     Dosage: UNK, CYCLIC (6 CYCLES)
     Route: 065
  5. ETOPOSIDE [Suspect]
     Active Substance: ETOPOSIDE
     Indication: Retinoblastoma
     Dosage: UNK, CYCLIC (6 CYCLES)
     Route: 065

REACTIONS (5)
  - Retinal ischaemia [Unknown]
  - Autonomic nervous system imbalance [Unknown]
  - Administration related reaction [Unknown]
  - VIth nerve paralysis [Unknown]
  - Drug ineffective [Unknown]
